FAERS Safety Report 6715196-6 (Version None)
Quarter: 2010Q2

REPORT INFORMATION
  Report Type: 
  Country: None (occurrence: None)
  Receive Date: 20100507
  Receipt Date: 20100427
  Transmission Date: 20101027
  Serious: Yes (Hospitalization)
  Sender: FDA-Public Use
  Company Number: US-JNJFOC-20100408185

PATIENT
  Sex: Female
  Weight: 34.6 kg

DRUGS (7)
  1. REMICADE [Suspect]
     Indication: CROHN'S DISEASE
     Route: 042
  2. HUMIRA [Concomitant]
  3. TRAMADOL [Concomitant]
  4. ACETAMINOPHEN [Concomitant]
  5. AMITRIPTLINE HYDROCHLORIDE TAB [Concomitant]
  6. LANSOPRAZOLE [Concomitant]
  7. PRAVASTATIN [Concomitant]

REACTIONS (2)
  - CROHN'S DISEASE [None]
  - HAEMATOCHEZIA [None]
